FAERS Safety Report 4852608-7 (Version None)
Quarter: 2005Q4

REPORT INFORMATION
  Report Type: 
  Country: None (occurrence: None)
  Receive Date: 20051213
  Receipt Date: 20051202
  Transmission Date: 20060501
  Serious: Yes (Hospitalization)
  Sender: FDA-Public Use
  Company Number: PHBS2005EE17940

PATIENT
  Age: 45 Year
  Sex: Male

DRUGS (2)
  1. LAMISIL [Suspect]
     Route: 048
     Dates: start: 20051101
  2. ALCOHOL [Concomitant]

REACTIONS (17)
  - ALANINE AMINOTRANSFERASE INCREASED [None]
  - ASPARTATE AMINOTRANSFERASE INCREASED [None]
  - ASTHENIA [None]
  - BLOOD ALKALINE PHOSPHATASE INCREASED [None]
  - BLOOD BILIRUBIN INCREASED [None]
  - BLOOD CREATINE PHOSPHOKINASE INCREASED [None]
  - BLOOD CREATINE PHOSPHOKINASE MB INCREASED [None]
  - BLOOD IMMUNOGLOBULIN E INCREASED [None]
  - CARDIAC ENZYMES INCREASED [None]
  - CHEST PAIN [None]
  - DERMATITIS ALLERGIC [None]
  - ELECTROCARDIOGRAM ABNORMAL [None]
  - GAMMA-GLUTAMYLTRANSFERASE INCREASED [None]
  - HEPATITIS TOXIC [None]
  - MYOCARDITIS [None]
  - RASH [None]
  - TROPONIN T INCREASED [None]
